FAERS Safety Report 9503583 (Version 1)
Quarter: 2013Q3

REPORT INFORMATION
  Report Type: Spontaneous
  Country: US (occurrence: None)
  Receive Date: 20130905
  Receipt Date: 20130905
  Transmission Date: 20140515
  Serious: Yes (Disabling)
  Sender: FDA-Public Use
  Company Number: None

PATIENT
  Age: 81 None
  Sex: Female

DRUGS (8)
  1. CYMBALTA [Suspect]
     Indication: BACK PAIN
     Dosage: 30 MG+ 60 MG ONLY SAMPLES, 68 MG 1 X PDAY 1 X AM MOUTH ONLY 60 MG PDAY
     Route: 048
     Dates: start: 20130716, end: 20130731
  2. PREMARIN [Concomitant]
  3. THYROID [Concomitant]
  4. IBUPROFIN [Concomitant]
  5. TRAMADOL [Concomitant]
  6. MULTI VITAMIN C [Concomitant]
  7. FISH OIL [Concomitant]
  8. ALLEVE [Concomitant]

REACTIONS (9)
  - Depression [None]
  - Drug withdrawal syndrome [None]
  - Headache [None]
  - Vomiting [None]
  - Night sweats [None]
  - Apathy [None]
  - Palpitations [None]
  - Suicidal ideation [None]
  - Anhedonia [None]
